FAERS Safety Report 6790974-6 (Version None)
Quarter: 2010Q2

REPORT INFORMATION
  Report Type: 
  Country: None (occurrence: None)
  Receive Date: 20100624
  Receipt Date: 20100617
  Transmission Date: 20101027
  Serious: Yes (Hospitalization)
  Sender: FDA-Public Use
  Company Number: JP-MERCK-1003USA00271

PATIENT
  Age: 56 Year
  Sex: Female
  Weight: 66 kg

DRUGS (6)
  1. JANUVIA [Suspect]
     Indication: DIABETES MELLITUS
     Dosage: THE DIVIDED DOSE FREQUENCY IS UNCERTAIN
     Route: 048
     Dates: start: 20091217, end: 20100209
  2. GLIMICRON [Concomitant]
     Indication: DIABETES MELLITUS
     Dosage: THE DIVIDED DOSE FREQUENCY IS UNCERTAIN
     Route: 048
     Dates: start: 20070801
  3. MERCAZOLE [Concomitant]
     Indication: BASEDOW'S DISEASE
     Dosage: THE DIVIDED DOSE FREQUENCY IS UNCERTAIN
     Route: 048
     Dates: start: 20060807
  4. ZANTAC [Concomitant]
     Indication: ABDOMINAL PAIN UPPER
     Dosage: THE DIVIDED DOSE FREQUENCY IS UNCERTAIN
     Route: 048
     Dates: start: 20090312, end: 20100209
  5. BASEN [Concomitant]
     Indication: DIABETES MELLITUS
     Route: 048
     Dates: start: 20040601, end: 20091216
  6. ACTOS [Concomitant]
     Indication: DIABETES MELLITUS
     Route: 048
     Dates: start: 20071218, end: 20100209

REACTIONS (5)
  - BLOOD PRESSURE DECREASED [None]
  - DUODENAL ULCER [None]
  - DYSSTASIA [None]
  - GLYCOSYLATED HAEMOGLOBIN INCREASED [None]
  - MALAISE [None]
